FAERS Safety Report 10756505 (Version 2)
Quarter: 2015Q2

REPORT INFORMATION
  Report Type: Spontaneous
  Country: US (occurrence: US)
  Receive Date: 20150202
  Receipt Date: 20150403
  Transmission Date: 20150821
  Serious: No
  Sender: FDA-Public Use
  Company Number: US-GLAXOSMITHKLINE-US2014GSK048631

PATIENT
  Sex: Female
  Weight: 75.74 kg

DRUGS (5)
  1. BENADRYL [Concomitant]
     Active Substance: DIPHENHYDRAMINE HYDROCHLORIDE
  2. MOBIC [Concomitant]
     Active Substance: MELOXICAM
  3. NEURONTIN [Concomitant]
     Active Substance: GABAPENTIN
  4. BENLYSTA [Suspect]
     Active Substance: BELIMUMAB
     Indication: PRODUCT USED FOR UNKNOWN INDICATION
     Dosage: 10 MG/KG, CYC
     Route: 042
     Dates: start: 20141030
  5. VALIUM [Concomitant]
     Active Substance: DIAZEPAM

REACTIONS (2)
  - Anxiety [Recovered/Resolved]
  - Chest discomfort [Recovered/Resolved]
